FAERS Safety Report 13582711 (Version 1)
Quarter: 2017Q2

REPORT INFORMATION
  Report Type: Spontaneous
  Country: US (occurrence: US)
  Receive Date: 20170525
  Receipt Date: 20170525
  Transmission Date: 20170830
  Serious: No
  Sender: FDA-Public Use
  Company Number: US-ALARA PHARMACEUTICAL CORPORATION-2021226

PATIENT

DRUGS (1)
  1. LEVO-T [Suspect]
     Active Substance: LEVOTHYROXINE SODIUM

REACTIONS (2)
  - Pain in extremity [Unknown]
  - Muscle spasms [Unknown]
